FAERS Safety Report 16697828 (Version 2)
Quarter: 2019Q3

REPORT INFORMATION
  Report Type: Spontaneous
  Country: US (occurrence: US)
  Receive Date: 20190813
  Receipt Date: 20190919
  Transmission Date: 20191004
  Serious: Yes (Other)
  Sender: FDA-Public Use
  Company Number: US-PFIZER INC-2019344007

PATIENT
  Age: 81 Year
  Sex: Female
  Weight: 72.11 kg

DRUGS (1)
  1. IBRANCE [Suspect]
     Active Substance: PALBOCICLIB
     Indication: BREAST CANCER METASTATIC
     Dosage: 125 MG, CYCLIC (DAYS X21, 28 DAY CYCLE)
     Route: 048
     Dates: start: 20190729

REACTIONS (8)
  - Pain in extremity [Unknown]
  - Dizziness [Unknown]
  - Deep vein thrombosis [Unknown]
  - Oropharyngeal pain [Unknown]
  - Dyspnoea [Unknown]
  - Dysphonia [Unknown]
  - Diarrhoea [Unknown]
  - Fatigue [Unknown]
